FAERS Safety Report 6170979-9 (Version None)
Quarter: 2009Q2

REPORT INFORMATION
  Report Type: 
  Country: None (occurrence: None)
  Receive Date: 20090429
  Receipt Date: 20090417
  Transmission Date: 20091009
  Serious: Yes (Hospitalization)
  Sender: FDA-Public Use
  Company Number: GB-RANBAXY-2009RR-23586

PATIENT
  Age: 14 Year
  Sex: Male
  Weight: 68.6 kg

DRUGS (2)
  1. ISOTRETINOIN [Suspect]
     Indication: ACNE PUSTULAR
     Dosage: 35 MG, UNK
     Route: 048
     Dates: start: 20090303, end: 20090305
  2. MINOCYCLINE HCL [Concomitant]
     Indication: ACNE
     Dosage: 100 MG, UNK
     Route: 048
     Dates: start: 20080201, end: 20080228

REACTIONS (4)
  - ACNE [None]
  - BLISTER [None]
  - BLOOD BLISTER [None]
  - FOLLICULITIS [None]
